FAERS Safety Report 15232262 (Version 1)
Quarter: 2018Q3

REPORT INFORMATION
  Report Type: Spontaneous
  Country: US (occurrence: US)
  Receive Date: 20180709
  Receipt Date: 20180709
  Transmission Date: 20181010
  Serious: No
  Sender: FDA-Public Use
  Company Number: None

PATIENT
  Age: 70 Year
  Sex: Female
  Weight: 83.25 kg

DRUGS (10)
  1. LEVOTHYROXINE. [Concomitant]
     Active Substance: LEVOTHYROXINE
  2. MULTIVITAMIN [Concomitant]
     Active Substance: VITAMINS
  3. HYDROCHOLOTHIAZIDE [Concomitant]
  4. ATORVASTATIN [Concomitant]
     Active Substance: ATORVASTATIN
  5. CALCIUM [Concomitant]
     Active Substance: CALCIUM
  6. VITAMIN D3 [Concomitant]
     Active Substance: CHOLECALCIFEROL
  7. CYANOCOBALAMIN. [Concomitant]
     Active Substance: CYANOCOBALAMIN
  8. BACITRACIN OPHTHALMIC OINTMENT USP [Suspect]
     Active Substance: BACITRACIN
     Indication: DRY EYE
     Dosage: ?          OTHER STRENGTH:UNITS/GRAM;QUANTITY:0.33 INCH;?
     Route: 047
  9. AMLODIPINE [Concomitant]
     Active Substance: AMLODIPINE BESYLATE
  10. APAP [Concomitant]
     Active Substance: ACETAMINOPHEN

REACTIONS (3)
  - Eyelid oedema [None]
  - Ocular hyperaemia [None]
  - Conjunctivitis bacterial [None]

NARRATIVE: CASE EVENT DATE: 20180614
